FAERS Safety Report 8113533-1 (Version None)
Quarter: 2012Q1

REPORT INFORMATION
  Report Type: 
  Country: None (occurrence: None)
  Receive Date: 20120203
  Receipt Date: 20120123
  Transmission Date: 20120608
  Serious: Yes (Other)
  Sender: FDA-Public Use
  Company Number: GB-ELI_LILLY_AND_COMPANY-GB201201008278

PATIENT
  Age: 1 Day
  Sex: Female

DRUGS (4)
  1. HUMALOG [Suspect]
     Dosage: 16 U, TID
     Route: 064
     Dates: start: 20110407, end: 20110419
  2. HUMALOG [Suspect]
     Dosage: 16 U, TID
     Route: 064
     Dates: start: 20110407, end: 20110419
  3. ANTIHYPERTENSIVES [Concomitant]
     Route: 064
  4. ANTIHYPERTENSIVES [Concomitant]
     Indication: PRE-ECLAMPSIA
     Route: 064

REACTIONS (3)
  - FOETAL EXPOSURE DURING PREGNANCY [None]
  - PREMATURE BABY [None]
  - LOW BIRTH WEIGHT BABY [None]
